FAERS Safety Report 6026344-8 (Version None)
Quarter: 2008Q4

REPORT INFORMATION
  Report Type: 
  Country: None (occurrence: None)
  Receive Date: 20081222
  Receipt Date: 20081003
  Transmission Date: 20090506
  Serious: No
  Sender: FDA-Public Use
  Company Number: US-WYE-H06261108

PATIENT
  Age: 43 Year
  Sex: Female
  Weight: 95.34 kg

DRUGS (4)
  1. (DESVENLAFAXINE SUCCINATE MONOHYDRATE) [Suspect]
     Indication: DEPRESSION
     Dosage: 50 MG 1X PER 1 DAY, ORAL
     Route: 047
     Dates: start: 20080930
  2. TRAZODONE HCL [Suspect]
     Indication: SLEEP DISORDER
     Dosage: 50 MG PRN FOR SLEEP
  3. MECLIZINE [Concomitant]
  4. PHENERGAN HCL [Concomitant]

REACTIONS (2)
  - HEADACHE [None]
  - SENSATION OF FOREIGN BODY [None]
